FAERS Safety Report 6122602-7 (Version None)
Quarter: 2009Q1

REPORT INFORMATION
  Report Type: 
  Country: None (occurrence: None)
  Receive Date: 20090316
  Receipt Date: 20090316
  Transmission Date: 20090719
  Serious: Yes (Other)
  Sender: FDA-Public Use
  Company Number: None

PATIENT
  Sex: Female
  Weight: 61.2356 kg

DRUGS (11)
  1. OMALIZUMAB 150MG GENENTECH [Suspect]
     Indication: ALLERGY TEST POSITIVE
     Dosage: 225MG Q 2 WEEKS SQ
     Dates: start: 20070928, end: 20081009
  2. OMALIZUMAB 150MG GENENTECH [Suspect]
     Indication: ASTHMA
     Dosage: 225MG Q 2 WEEKS SQ
     Dates: start: 20070928, end: 20081009
  3. ADVAIR HFA [Concomitant]
  4. PULMICORT-100 [Concomitant]
  5. SINGULAIR [Concomitant]
  6. INTAL [Concomitant]
  7. NASONEX [Concomitant]
  8. PROAIR HFA [Concomitant]
  9. THEOPHYLLINE [Concomitant]
  10. ZYRTEC [Concomitant]
  11. OMEPRAZOLE [Concomitant]

REACTIONS (1)
  - MALIGNANT NEOPLASM OF UTERINE ADNEXA [None]
